FAERS Safety Report 7681575-6 (Version None)
Quarter: 2011Q3

REPORT INFORMATION
  Report Type: 
  Country: None (occurrence: None)
  Receive Date: 20110812
  Receipt Date: 20110802
  Transmission Date: 20111222
  Serious: Yes (Other)
  Sender: FDA-Public Use
  Company Number: PHHY2011DE48194

PATIENT
  Sex: Female
  Weight: 53 kg

DRUGS (2)
  1. FEMARA [Suspect]
     Indication: BREAST CANCER
     Dosage: 2.5 MG, QD
     Route: 048
     Dates: start: 20060511, end: 20080401
  2. BISPHOSPHONATES [Concomitant]
     Dosage: 150 MG A  MONTH
     Dates: start: 20070501

REACTIONS (3)
  - VITREOUS DISORDER [None]
  - BACK PAIN [None]
  - PHOTOPSIA [None]
